FAERS Safety Report 4993527-5 (Version None)
Quarter: 2006Q2

REPORT INFORMATION
  Report Type: 
  Country: None (occurrence: None)
  Receive Date: 20060504
  Receipt Date: 20060504
  Transmission Date: 20061013
  Serious: Yes (Disabling, Other)
  Sender: FDA-Public Use
  Company Number: None

PATIENT
  Age: 60 Year
  Sex: Female
  Weight: 68.0396 kg

DRUGS (1)
  1. ZICAM NOSE SPRAY [Suspect]
     Indication: NASAL CONGESTION
     Dosage: 1 SPRAY ONCE A DAY INTRA-NASAL
     Route: 045
     Dates: start: 20051212, end: 20051226

REACTIONS (2)
  - AGEUSIA [None]
  - ANOSMIA [None]
